FAERS Safety Report 4309010-6 (Version None)
Quarter: 2004Q1

REPORT INFORMATION
  Report Type: 
  Country: None (occurrence: None)
  Receive Date: 20040302
  Receipt Date: 20031118
  Transmission Date: 20041129
  Serious: Yes (Hospitalization, Other)
  Sender: FDA-Public Use
  Company Number: US-BRISTOL-MYERS SQUIBB COMPANY-12437349

PATIENT
  Age: 64 Year
  Sex: Male
  Weight: 77 kg

DRUGS (18)
  1. CISPLATIN [Interacting]
     Indication: MESOTHELIOMA
     Route: 042
     Dates: start: 20031003, end: 20031003
  2. PHENYTOIN [Interacting]
     Indication: CONVULSION
     Route: 048
  3. PEMETREXED DISODIUM [Suspect]
     Indication: MESOTHELIOMA
     Route: 042
     Dates: start: 20031003, end: 20031003
  4. DEXAMETHASONE [Suspect]
     Indication: PROPHYLAXIS OF NAUSEA AND VOMITING
     Dates: start: 20031002
  5. HUMALOG [Concomitant]
     Indication: DIABETES MELLITUS
  6. LANTUS [Concomitant]
     Indication: DIABETES MELLITUS
  7. FOLIC ACID [Concomitant]
     Dates: start: 20030905
  8. VITAMIN B-12 [Concomitant]
     Dates: start: 20030905
  9. LOPRESSOR [Concomitant]
     Indication: HYPERTENSION
  10. LISINOPRIL [Concomitant]
     Indication: HYPERTENSION
  11. LIPITOR [Concomitant]
     Indication: CORONARY ARTERY DISEASE
     Dates: start: 20030101
  12. PREVACID [Concomitant]
     Indication: GASTROOESOPHAGEAL REFLUX DISEASE
  13. AMBIEN [Concomitant]
     Indication: SLEEP DISORDER
  14. LORTAB [Concomitant]
     Indication: PAIN
  15. METOCLOPRAMIDE [Concomitant]
     Indication: NAUSEA
     Dates: start: 20030913
  16. COUMADIN [Concomitant]
     Indication: CORONARY ARTERY DISEASE
     Dates: start: 20030101
  17. FERROUS SULFATE TAB [Concomitant]
     Indication: ANAEMIA PROPHYLAXIS
     Dates: start: 20030801
  18. ATIVAN [Concomitant]
     Indication: ANXIETY
     Dates: start: 20031003

REACTIONS (7)
  - ANTICONVULSANT DRUG LEVEL DECREASED [None]
  - DRUG INTERACTION [None]
  - GRAND MAL CONVULSION [None]
  - HYPERGLYCAEMIA [None]
  - HYPERMETABOLISM [None]
  - HYPOMAGNESAEMIA [None]
  - SIMPLE PARTIAL SEIZURES [None]
